FAERS Safety Report 7705837-9 (Version None)
Quarter: 2011Q3

REPORT INFORMATION
  Report Type: 
  Country: None (occurrence: None)
  Receive Date: 20110824
  Receipt Date: 20110812
  Transmission Date: 20111222
  Serious: Yes (Hospitalization)
  Sender: FDA-Public Use
  Company Number: NO-ELI_LILLY_AND_COMPANY-NO201107000890

PATIENT
  Age: 31 Year
  Sex: Male

DRUGS (7)
  1. ZYPREXA [Suspect]
     Indication: SCHIZOAFFECTIVE DISORDER
     Dosage: 2.5 MG, QD
     Route: 048
  2. OXAZEPAM [Concomitant]
     Dosage: 10 MG, TID
     Route: 048
  3. LAMICTAL [Concomitant]
     Dosage: 200 MG, BID
     Route: 048
  4. ZYPREXA [Suspect]
     Indication: SCHIZOAFFECTIVE DISORDER
     Dosage: 5 MG, AS NEEDED
     Route: 048
  5. IMOVANE [Concomitant]
     Dosage: 5 MG, AS NEEDED
     Route: 048
  6. OLANZAPINE [Suspect]
     Indication: SCHIZOAFFECTIVE DISORDER
     Dosage: 405 MG, EVERY 3 WEEKS
     Dates: start: 20110101
  7. ESCITALOPRAM [Concomitant]
     Dosage: UNK, QD
     Route: 065

REACTIONS (5)
  - FATIGUE [None]
  - SEDATION [None]
  - AKATHISIA [None]
  - DYSARTHRIA [None]
  - OVERDOSE [None]
